FAERS Safety Report 4282956-3 (Version None)
Quarter: 2004Q1

REPORT INFORMATION
  Report Type: 
  Country: None (occurrence: None)
  Receive Date: 20040130
  Receipt Date: 20021031
  Transmission Date: 20041129
  Serious: Yes (Other)
  Sender: FDA-Public Use
  Company Number: PHEH2002US09520

PATIENT
  Age: 79 Year
  Sex: Female

DRUGS (6)
  1. CALTRATE [Concomitant]
     Route: 048
     Dates: start: 20030101
  2. MIACALCIN [Suspect]
     Indication: OSTEOPOROSIS
     Dosage: 200 IU, QD
     Dates: start: 20030301
  3. MIACALCIN [Suspect]
     Dosage: 200 IU, QD
     Dates: start: 20040109, end: 20040119
  4. MIACALCIN [Suspect]
     Dosage: 2200 IU/ML, QD
     Dates: start: 20020923, end: 20021015
  5. MIACALCIN [Suspect]
     Dosage: 2200 IU/ML, QD
     Dates: start: 20021019, end: 20021030
  6. HUMULIN L [Concomitant]
     Dosage: UNK, BID
     Route: 058

REACTIONS (5)
  - BLOOD GLUCOSE DECREASED [None]
  - BLOOD GLUCOSE INCREASED [None]
  - FALL [None]
  - LOSS OF CONSCIOUSNESS [None]
  - PAIN IN EXTREMITY [None]
